FAERS Safety Report 18509988 (Version 2)
Quarter: 2020Q4

REPORT INFORMATION
  Report Type: Spontaneous
  Country: US (occurrence: US)
  Receive Date: 20201117
  Receipt Date: 20201120
  Transmission Date: 20210114
  Serious: Yes (Other)
  Sender: FDA-Public Use
  Company Number: US-UCBSA-2020045230

PATIENT
  Age: 81 Year
  Sex: Female

DRUGS (1)
  1. KEPPRA [Suspect]
     Active Substance: LEVETIRACETAM
     Indication: BIPOLAR I DISORDER
     Dosage: UNK

REACTIONS (7)
  - Arthralgia [Unknown]
  - Nasal congestion [Not Recovered/Not Resolved]
  - Product use in unapproved indication [Unknown]
  - Parkinson^s disease [Unknown]
  - Pain [Unknown]
  - Thrombosis [Unknown]
  - Dementia Alzheimer^s type [Unknown]
